FAERS Safety Report 7980623-3 (Version None)
Quarter: 2011Q4

REPORT INFORMATION
  Report Type: 
  Country: None (occurrence: None)
  Receive Date: 20111214
  Receipt Date: 20111205
  Transmission Date: 20120403
  Serious: Yes (Other)
  Sender: FDA-Public Use
  Company Number: US-JNJFOC-20111202569

PATIENT
  Sex: Male
  Weight: 124.74 kg

DRUGS (1)
  1. STELARA [Suspect]
     Indication: PSORIASIS
     Route: 058
     Dates: start: 20100101

REACTIONS (5)
  - DRUG DOSE OMISSION [None]
  - NERVE COMPRESSION [None]
  - PAIN IN EXTREMITY [None]
  - BONE PAIN [None]
  - ARTHRALGIA [None]
